FAERS Safety Report 10145144 (Version 1)
Quarter: 2014Q2

REPORT INFORMATION
  Report Type: Spontaneous
  Country: US (occurrence: US)
  Receive Date: 20140501
  Receipt Date: 20140501
  Transmission Date: 20141212
  Serious: No
  Sender: FDA-Public Use
  Company Number: US-BIOGENIDEC-2014BI040339

PATIENT
  Sex: Female

DRUGS (1)
  1. AVONEX [Suspect]
     Indication: MULTIPLE SCLEROSIS
     Route: 030
     Dates: start: 20010314

REACTIONS (6)
  - Memory impairment [Unknown]
  - Reading disorder [Unknown]
  - Agraphia [Unknown]
  - Coordination abnormal [Unknown]
  - Abasia [Unknown]
  - Aphasia [Unknown]
